FAERS Safety Report 6452950-2 (Version None)
Quarter: 2009Q4

REPORT INFORMATION
  Report Type: 
  Country: None (occurrence: None)
  Receive Date: 20091124
  Receipt Date: 20091109
  Transmission Date: 20100525
  Serious: Yes (Other)
  Sender: FDA-Public Use
  Company Number: PHHY2009BR48972

PATIENT
  Age: 50 Year
  Sex: Female
  Weight: 85 kg

DRUGS (11)
  1. FORASEQ [Suspect]
     Indication: COLLAPSE OF LUNG
  2. AMLODIPINE [Concomitant]
     Dosage: 5 MG, BID
  3. BEROTEC [Concomitant]
     Dosage: 6 DRP, UNK
  4. BEROTEC [Concomitant]
     Dosage: 4 DRP, Q6H
  5. ENALAPRIL MALEATE [Concomitant]
     Dosage: 2 DF DAILY
  6. ENALAPRIL MALEATE [Concomitant]
     Dosage: 1 DF DAILY
  7. ATROVENT [Concomitant]
     Dosage: 15 DRP, Q6H
  8. LEXOTAN [Concomitant]
     Dosage: 3 MG, QHS
  9. RIVOTRIL [Concomitant]
     Dosage: 1 DF NOCTE AND 0.5 DF MORNING
  10. RIVOTRIL [Concomitant]
     Dosage: 1 DF NOCTE
  11. METHYLDOPA [Concomitant]

REACTIONS (12)
  - BREATH SOUNDS ABNORMAL [None]
  - DYSPNOEA [None]
  - FATIGUE [None]
  - HEADACHE [None]
  - HYPERTENSION [None]
  - MALAISE [None]
  - MEDICATION ERROR [None]
  - PRODUCT QUALITY ISSUE [None]
  - SOMNOLENCE [None]
  - TACHYCARDIA [None]
  - THERAPEUTIC RESPONSE DECREASED [None]
  - THROAT TIGHTNESS [None]
